FAERS Safety Report 15519080 (Version 1)
Quarter: 2018Q4

REPORT INFORMATION
  Report Type: Spontaneous
  Country: US (occurrence: US)
  Receive Date: 20181017
  Receipt Date: 20181017
  Transmission Date: 20190205
  Serious: No
  Sender: FDA-Public Use
  Company Number: US-SA-2018SA283539

PATIENT
  Age: 59 Year
  Sex: Female

DRUGS (11)
  1. CAPRELSA [Suspect]
     Active Substance: VANDETANIB
     Indication: THYROID CANCER
  2. COMETRIQ [Suspect]
     Active Substance: CABOZANTINIB S-MALATE
     Dosage: UNK
     Route: 048
     Dates: start: 2018
  3. METFORMIN [Concomitant]
     Active Substance: METFORMIN HYDROCHLORIDE
  4. OSCAL [CALCIUM CARBONATE] [Concomitant]
  5. ASCORBIC ACID;BIOTIN;CALCIUM;CALCIUM PANTOTHENATE;COLECALCIFEROL;COPPE [Concomitant]
  6. COMETRIQ [Suspect]
     Active Substance: CABOZANTINIB S-MALATE
     Indication: THYROID CANCER
     Dosage: 140 MG, QD
     Route: 048
     Dates: start: 20130221, end: 20130326
  7. LISINOPRIL. [Concomitant]
     Active Substance: LISINOPRIL
  8. LEVOXYL [Concomitant]
     Active Substance: LEVOTHYROXINE SODIUM
  9. AMLODIPINE [Concomitant]
     Active Substance: AMLODIPINE BESYLATE
  10. COMETRIQ [Suspect]
     Active Substance: CABOZANTINIB S-MALATE
     Dosage: 20 UNK
     Route: 048
     Dates: start: 201512
  11. CALCITRIOL. [Concomitant]
     Active Substance: CALCITRIOL

REACTIONS (2)
  - Speech disorder [Unknown]
  - Dysphonia [Unknown]
